FAERS Safety Report 6045658-9 (Version None)
Quarter: 2009Q1

REPORT INFORMATION
  Report Type: 
  Country: None (occurrence: None)
  Receive Date: 20090121
  Receipt Date: 20081215
  Transmission Date: 20090719
  Serious: No
  Sender: FDA-Public Use
  Company Number: US-BAYER-200814902BCC

PATIENT
  Age: 68 Year
  Sex: Female
  Weight: 82 kg

DRUGS (3)
  1. ALEVE-D SINUS + COLD [Suspect]
     Indication: SINUS HEADACHE
     Route: 048
     Dates: start: 20081214
  2. VITAMIN B12 COMPLEX [Concomitant]
  3. CENTRUM SILVER [Concomitant]

REACTIONS (2)
  - FATIGUE [None]
  - POOR QUALITY SLEEP [None]
